FAERS Safety Report 7621777-8 (Version None)
Quarter: 2011Q3

REPORT INFORMATION
  Report Type: 
  Country: None (occurrence: None)
  Receive Date: 20110719
  Receipt Date: 20110706
  Transmission Date: 20111222
  Serious: Yes (Hospitalization)
  Sender: FDA-Public Use
  Company Number: TR-MYLANLABS-2011S1014356

PATIENT
  Age: 34 Year
  Sex: Male

DRUGS (1)
  1. METFORMIN HCL [Suspect]
     Indication: INTENTIONAL OVERDOSE
     Dosage: DOSAGE FORMS: 850MG TABLETS
     Route: 048

REACTIONS (4)
  - RENAL FAILURE ACUTE [None]
  - LACTIC ACIDOSIS [None]
  - INTENTIONAL OVERDOSE [None]
  - HYPOGLYCAEMIA [None]
